FAERS Safety Report 15349089 (Version 1)
Quarter: 2018Q3

REPORT INFORMATION
  Report Type: Spontaneous
  Country: US (occurrence: US)
  Receive Date: 20180904
  Receipt Date: 20180904
  Transmission Date: 20181010
  Serious: Yes (Hospitalization, Other)
  Sender: FDA-Public Use
  Company Number: US-SSP-2018SA159709AA

PATIENT
  Age: 45 Year
  Sex: Male

DRUGS (6)
  1. PARACETAMOL [Suspect]
     Active Substance: ACETAMINOPHEN
     Indication: FATIGUE
  2. PARACETAMOL [Suspect]
     Active Substance: ACETAMINOPHEN
     Indication: MALAISE
  3. DIPHENHYDRAMINE. [Suspect]
     Active Substance: DIPHENHYDRAMINE
     Indication: FATIGUE
  4. DIPHENHYDRAMINE. [Suspect]
     Active Substance: DIPHENHYDRAMINE
     Indication: PYREXIA
  5. DIPHENHYDRAMINE. [Suspect]
     Active Substance: DIPHENHYDRAMINE
     Indication: MALAISE
  6. PARACETAMOL [Suspect]
     Active Substance: ACETAMINOPHEN
     Indication: PYREXIA

REACTIONS (9)
  - Rash erythematous [Recovered/Resolved]
  - Alanine aminotransferase increased [Recovering/Resolving]
  - Diarrhoea [Recovering/Resolving]
  - Human anaplasmosis [Unknown]
  - Sinus tachycardia [Unknown]
  - Thrombocytopenia [Recovering/Resolving]
  - Erythema of eyelid [Unknown]
  - Drug ineffective [Unknown]
  - Decreased appetite [Recovering/Resolving]
